FAERS Safety Report 12178502 (Version 1)
Quarter: 2016Q1

REPORT INFORMATION
  Report Type: Spontaneous
  Country: JP (occurrence: JP)
  Receive Date: 20160315
  Receipt Date: 20160315
  Transmission Date: 20160526
  Serious: Yes (Other)
  Sender: FDA-Public Use
  Company Number: JP-ROCHE-1726122

PATIENT
  Sex: Female
  Weight: 44 kg

DRUGS (2)
  1. COPEGUS [Suspect]
     Active Substance: RIBAVIRIN
     Indication: HEPATITIS C
     Dosage: IN THE MORNING:200MG, IN THE EVENING:400MG
     Route: 048
     Dates: start: 20151007, end: 20151103
  2. SOVALDI [Suspect]
     Active Substance: SOFOSBUVIR
     Indication: HEPATITIS C
     Dosage: MOST RECENT DOSE ON 03/NOV/2015
     Route: 048
     Dates: start: 20151007

REACTIONS (1)
  - Hepatic encephalopathy [Recovering/Resolving]
